FAERS Safety Report 13982428 (Version 1)
Quarter: 2017Q3

REPORT INFORMATION
  Report Type: Report from Study
  Country: None (occurrence: GB)
  Receive Date: 20170918
  Receipt Date: 20170918
  Transmission Date: 20171128
  Serious: Yes (Other)
  Sender: FDA-Public Use
  Company Number: GB-ABBVIE-17K-167-2102403-00

PATIENT
  Age: 51 Year
  Sex: Female
  Weight: 96 kg

DRUGS (2)
  1. HUMIRA [Suspect]
     Active Substance: ADALIMUMAB
     Indication: RHEUMATOID ARTHRITIS
     Route: 058
     Dates: start: 20060808
  2. METHOTREXATE. [Concomitant]
     Active Substance: METHOTREXATE
     Indication: RHEUMATOID ARTHRITIS

REACTIONS (7)
  - Dizziness [Unknown]
  - Depressed mood [Unknown]
  - Anger [Unknown]
  - Nausea [Unknown]
  - Pain of skin [Unknown]
  - Temporal arteritis [Unknown]
  - Blindness transient [Unknown]

NARRATIVE: CASE EVENT DATE: 20160910
